FAERS Safety Report 9966628 (Version 2)
Quarter: 2014Q1

REPORT INFORMATION
  Report Type: Report from Study
  Country: US (occurrence: US)
  Receive Date: 20140305
  Receipt Date: 20140305
  Transmission Date: 20141002
  Serious: Yes (Other)
  Sender: FDA-Public Use
  Company Number: US-ABBVIE-13P-163-1079792-00

PATIENT
  Age: 41 Year
  Sex: Male

DRUGS (4)
  1. HUMIRA [Suspect]
     Indication: CROHN^S DISEASE
     Dates: start: 20130102, end: 20130315
  2. HUMIRA [Suspect]
     Dates: start: 20130710
  3. PENTASA [Concomitant]
     Indication: CROHN^S DISEASE
  4. PENTASA [Concomitant]

REACTIONS (6)
  - Ileectomy [Recovering/Resolving]
  - Feeling abnormal [Recovering/Resolving]
  - Intestinal ulcer [Recovering/Resolving]
  - Gastrointestinal oedema [Recovering/Resolving]
  - Abdominal discomfort [Recovering/Resolving]
  - Injection site bruising [Recovering/Resolving]
